FAERS Safety Report 22246907 (Version 1)
Quarter: 2023Q2

REPORT INFORMATION
  Report Type: Spontaneous
  Country: CN (occurrence: CN)
  Receive Date: 20230424
  Receipt Date: 20230424
  Transmission Date: 20230721
  Serious: Yes (Other)
  Sender: FDA-Public Use
  Company Number: CN-002147023-NVSC2023CN092356

PATIENT
  Age: 59 Year
  Sex: Male
  Weight: 85 kg

DRUGS (4)
  1. ENTRESTO [Suspect]
     Active Substance: SACUBITRIL\VALSARTAN
     Indication: Blood pressure increased
     Dosage: 100 MG, BID
     Route: 048
     Dates: start: 20230413, end: 20230414
  2. ENTRESTO [Suspect]
     Active Substance: SACUBITRIL\VALSARTAN
     Dosage: 50 MG, BID
     Route: 065
  3. ADALAT [Suspect]
     Active Substance: NIFEDIPINE
     Indication: Blood pressure increased
     Dosage: 30 MG, QD (CONTROLLED RELEASE)
     Route: 048
     Dates: start: 20230413, end: 20230414
  4. SODIUM NITROPRUSSIDE [Concomitant]
     Active Substance: SODIUM NITROPRUSSIDE
     Indication: Blood pressure increased
     Dosage: UNK
     Route: 065

REACTIONS (1)
  - Hypotension [Recovering/Resolving]

NARRATIVE: CASE EVENT DATE: 20230414
